FAERS Safety Report 4474034-5 (Version None)
Quarter: 2004Q4

REPORT INFORMATION
  Report Type: 
  Country: None (occurrence: None)
  Receive Date: 20041008
  Receipt Date: 20040916
  Transmission Date: 20050328
  Serious: Yes (Hospitalization, Other)
  Sender: FDA-Public Use
  Company Number: USA040259552

PATIENT
  Age: 78 Year
  Sex: Female

DRUGS (5)
  1. FORTEO [Suspect]
     Indication: OSTEOPOROSIS
     Dosage: 20 UG DAY
     Dates: start: 20040124
  2. SYNTHROID [Concomitant]
  3. LIPITOR [Concomitant]
  4. ZOLOFT        (SERTRALINE HYDOCHLORIDE) [Concomitant]
  5. PREDNISOLONE [Concomitant]

REACTIONS (5)
  - FAECES DISCOLOURED [None]
  - IMPAIRED HEALING [None]
  - PAIN EXACERBATED [None]
  - PHARMACEUTICAL PRODUCT COMPLAINT [None]
  - POST PROCEDURAL COMPLICATION [None]
